FAERS Safety Report 7434186-1 (Version None)
Quarter: 2011Q2

REPORT INFORMATION
  Report Type: 
  Country: None (occurrence: None)
  Receive Date: 20110425
  Receipt Date: 20110418
  Transmission Date: 20111010
  Serious: No
  Sender: FDA-Public Use
  Company Number: US-PFIZER INC-2011085005

PATIENT
  Sex: Female
  Weight: 58.05 kg

DRUGS (5)
  1. TENORMIN [Concomitant]
     Indication: TACHYARRHYTHMIA
     Dosage: 50 MG, UNK
     Dates: start: 19860101
  2. CALAN [Suspect]
     Indication: HYPERTENSION
     Dosage: 60 MG, 2X/DAY
     Route: 048
     Dates: start: 19920101
  3. PREMARIN [Concomitant]
     Indication: ILL-DEFINED DISORDER
     Dosage: 0.625 MG, UNK
  4. CENTRUM SILVER [Concomitant]
     Dosage: UNK
  5. CALCIUM [Concomitant]
     Indication: BONE DISORDER
     Dosage: UNK

REACTIONS (3)
  - WRONG TECHNIQUE IN DRUG USAGE PROCESS [None]
  - BLOOD PRESSURE FLUCTUATION [None]
  - DYSPNOEA [None]
